FAERS Safety Report 6395426-3 (Version None)
Quarter: 2009Q4

REPORT INFORMATION
  Report Type: 
  Country: None (occurrence: None)
  Receive Date: 20091009
  Receipt Date: 20091001
  Transmission Date: 20100525
  Serious: Yes (Hospitalization)
  Sender: FDA-Public Use
  Company Number: US-PFIZER INC-2009245089

PATIENT
  Sex: Male

DRUGS (19)
  1. SILDENAFIL CITRATE [Suspect]
     Indication: PULMONARY HYPERTENSION
     Dosage: 20 MG, 3X/DAY
     Route: 048
     Dates: start: 20090225, end: 20090605
  2. SILDENAFIL CITRATE [Suspect]
     Dosage: 40 MG, 3X/DAY
     Route: 048
     Dates: start: 20090605, end: 20090623
  3. SILDENAFIL CITRATE [Suspect]
     Dosage: 20 MG, 3X/DAY
     Route: 048
     Dates: start: 20090724, end: 20090725
  4. SILDENAFIL CITRATE [Suspect]
     Dosage: 40 MG, 2X/DAY
     Route: 048
     Dates: start: 20090726, end: 20090727
  5. SILDENAFIL CITRATE [Suspect]
     Dosage: 20 MG, 1X/DAY
     Route: 048
     Dates: start: 20090728, end: 20090729
  6. IMDUR [Suspect]
     Indication: RIGHT VENTRICULAR FAILURE
     Dosage: 60 MG, 1X/DAY
     Route: 048
     Dates: start: 20090326, end: 20090814
  7. HYDRALAZINE [Suspect]
     Indication: RIGHT VENTRICULAR FAILURE
     Dosage: 25 MG, 2X/DAY
     Route: 048
     Dates: start: 20090326, end: 20090814
  8. METOPROLOL [Suspect]
     Indication: RIGHT VENTRICULAR FAILURE
     Dosage: 25 MG, 2X/DAY
     Route: 048
     Dates: start: 20090326, end: 20090814
  9. DIGOXIN [Suspect]
     Indication: HEART RATE IRREGULAR
     Dosage: 0.125 MG, 1X/DAY
     Route: 048
  10. LEXAPRO [Concomitant]
     Indication: DEPRESSION
     Dosage: 10 MG, 1X/DAY
     Route: 048
     Dates: start: 20090421
  11. FUROSEMIDE [Concomitant]
     Indication: RIGHT VENTRICULAR FAILURE
     Dosage: 40 MG, 2X/DAY
     Route: 048
     Dates: start: 20090326
  12. ACETAMINOPHEN AND OXYCODONE HCL [Concomitant]
     Indication: ANALGESIC THERAPY
     Dosage: 10/650 MG, UNK
  13. ALPRAZOLAM [Concomitant]
     Indication: ANXIETY
     Dosage: 1 MG, AS NEEDED
     Route: 048
  14. ENALAPRIL [Concomitant]
     Indication: HYPERTENSION
     Dosage: 20 MG, 1X/DAY
     Route: 048
  15. MAGNESIUM OXIDE [Concomitant]
     Indication: SUPPLEMENTATION THERAPY
     Dosage: 800 MG, 1X/DAY
     Route: 048
  16. POTASSIUM CHLORIDE [Concomitant]
     Indication: BLOOD PRESSURE
     Dosage: 10 UNK, 1X/DAY
     Route: 048
  17. GABAPENTIN [Concomitant]
     Indication: REHABILITATION THERAPY
     Dosage: 800 MG, 8HR
     Dates: start: 20060704
  18. WARFARIN [Concomitant]
     Indication: ANTICOAGULANT THERAPY
     Dosage: 5 MG, 1X/DAY
     Route: 048
  19. HYDROXYUREA [Concomitant]
     Indication: SICKLE CELL ANAEMIA
     Dosage: 1500 MG, 1X/DAY
     Route: 048

REACTIONS (2)
  - HYPOTENSION [None]
  - SICKLE CELL ANAEMIA WITH CRISIS [None]
